FAERS Safety Report 8123417-0 (Version None)
Quarter: 2012Q1

REPORT INFORMATION
  Report Type: 
  Country: None (occurrence: None)
  Receive Date: 20120208
  Receipt Date: 20120208
  Transmission Date: 20120608
  Serious: Yes (Death, Other)
  Sender: FDA-Public Use
  Company Number: SE-PFIZER INC-2011306450

PATIENT
  Age: 55 Year
  Sex: Male

DRUGS (8)
  1. OXYCONTIN [Suspect]
     Dosage: UNK
  2. RISPERDAL [Concomitant]
     Dosage: 1 MG, 2X/DAY
     Dates: start: 20110101
  3. LYRICA [Suspect]
     Indication: GENERALISED ANXIETY DISORDER
     Dosage: 300 MG, 2X/DAY
     Route: 048
     Dates: start: 20090303
  4. MIRTAZAPINE [Concomitant]
     Dosage: 15 MG, 1X/DAY
     Dates: start: 20110127
  5. ANTABUSE [Concomitant]
     Dosage: 400 MG, 3 TIMES PER WEEK
     Dates: start: 20100901
  6. ESCITALOPRAM [Concomitant]
     Dosage: 15 MG, 1X/DAY
     Dates: start: 20100901
  7. LYRICA [Suspect]
     Indication: PAIN
  8. PROPAVAN [Concomitant]
     Dosage: 50 MG, 1X/DAY, AT NIGHT
     Dates: start: 20110101

REACTIONS (3)
  - DRUG DEPENDENCE [None]
  - TOXICITY TO VARIOUS AGENTS [None]
  - DEATH [None]
